FAERS Safety Report 5195120-0 (Version None)
Quarter: 2006Q4

REPORT INFORMATION
  Report Type: 
  Country: None (occurrence: None)
  Receive Date: 20061229
  Receipt Date: 20061220
  Transmission Date: 20070319
  Serious: Yes (Other)
  Sender: FDA-Public Use
  Company Number: US-PFIZER INC-2006155169

PATIENT
  Sex: Female
  Weight: 70.3 kg

DRUGS (7)
  1. XANAX [Suspect]
     Indication: NERVOUSNESS
  2. CHANTIX [Suspect]
     Indication: SMOKING CESSATION THERAPY
  3. PLAVIX [Concomitant]
  4. ASPIRIN [Concomitant]
  5. MUSCLE RELAXANTS [Concomitant]
  6. HYDROCODONE BITARTRATE [Concomitant]
  7. INSULIN [Concomitant]

REACTIONS (2)
  - BLOOD GLUCOSE DECREASED [None]
  - DRUG INEFFECTIVE [None]
